FAERS Safety Report 18728385 (Version 1)
Quarter: 2021Q1

REPORT INFORMATION
  Report Type: Spontaneous
  Country: US (occurrence: US)
  Receive Date: 20210112
  Receipt Date: 20210112
  Transmission Date: 20210419
  Serious: Yes (Other)
  Sender: FDA-Public Use
  Company Number: US-JNJFOC-20210103879

PATIENT
  Age: 48 Year
  Sex: Female

DRUGS (4)
  1. LAMICTAL [Concomitant]
     Active Substance: LAMOTRIGINE
  2. INVEGA SUSTENNA [Suspect]
     Active Substance: PALIPERIDONE PALMITATE
     Indication: SCHIZOPHRENIA
     Dosage: DAY 0
     Route: 030
     Dates: start: 20201207, end: 20201207
  3. INVEGA SUSTENNA [Suspect]
     Active Substance: PALIPERIDONE PALMITATE
     Dosage: DAY 08
     Route: 030
     Dates: start: 20201215, end: 20201215
  4. INVEGA SUSTENNA [Suspect]
     Active Substance: PALIPERIDONE PALMITATE

REACTIONS (5)
  - Gait inability [Unknown]
  - Aphasia [Unknown]
  - Urinary incontinence [Unknown]
  - Urinary retention [Unknown]
  - Bradykinesia [Unknown]

NARRATIVE: CASE EVENT DATE: 20201215
